FAERS Safety Report 7150964-0 (Version None)
Quarter: 2010Q4

REPORT INFORMATION
  Report Type: 
  Country: None (occurrence: None)
  Receive Date: 20101210
  Receipt Date: 20101203
  Transmission Date: 20110411
  Serious: Yes (Hospitalization)
  Sender: FDA-Public Use
  Company Number: A0896450A

PATIENT
  Age: 75 Year
  Sex: Female

DRUGS (10)
  1. PROMACTA [Suspect]
     Indication: IDIOPATHIC THROMBOCYTOPENIC PURPURA
     Dosage: 25MG PER DAY
     Route: 048
     Dates: start: 20100610, end: 20100715
  2. BLOOD TRANSFUSION [Concomitant]
     Dosage: 2UNIT SINGLE DOSE
     Route: 042
  3. PLATELETS [Concomitant]
     Dosage: 8UNIT SINGLE DOSE
     Route: 042
  4. GLIMEPIRIDE [Concomitant]
     Dosage: 8MG PER DAY
     Route: 048
  5. ATENOLOL [Concomitant]
     Dosage: 50MG PER DAY
     Route: 048
  6. HYZAAR [Concomitant]
     Route: 048
  7. LOSARTAN POTASSIUM [Concomitant]
     Dosage: 25MG PER DAY
     Route: 048
  8. TRICOR [Concomitant]
     Dosage: 145MG PER DAY
     Route: 048
  9. LIPITOR [Concomitant]
     Dosage: 80MG PER DAY
     Route: 048
  10. LANTUS [Concomitant]
     Dosage: 25UNIT PER DAY
     Route: 058

REACTIONS (5)
  - ANAEMIA [None]
  - CHRONIC GASTROINTESTINAL BLEEDING [None]
  - DRUG INEFFECTIVE [None]
  - GASTROINTESTINAL DISORDER [None]
  - HAEMATOCHEZIA [None]
